FAERS Safety Report 21580068 (Version 9)
Quarter: 2023Q1

REPORT INFORMATION
  Report Type: Report from Study
  Country: US (occurrence: US)
  Receive Date: 20221110
  Receipt Date: 20230215
  Transmission Date: 20230417
  Serious: Yes (Hospitalization, Disabling, Other)
  Sender: FDA-Public Use
  Company Number: US-G1 THERAPEUTICS-2022G1US0000245

PATIENT

DRUGS (22)
  1. TRILACICLIB [Suspect]
     Active Substance: TRILACICLIB
     Indication: Myelosuppression
     Dosage: 441 MG; 240 MG/M2 ON DAY 1 OF LEAD IN PHASE
     Route: 041
     Dates: start: 20220609, end: 20220609
  2. TRILACICLIB [Suspect]
     Active Substance: TRILACICLIB
     Dosage: 441 MG; 240 MG/M2 ON DAY 1 OF EACH 14-DAY CYCLE
     Route: 041
     Dates: start: 20220616, end: 20220728
  3. TRILACICLIB [Suspect]
     Active Substance: TRILACICLIB
     Dosage: 403 MG; 240 MG/M2 ON DAY 1 OF EACH 14-DAY CYCLE
     Route: 041
     Dates: start: 20220811, end: 20221027
  4. DOXORUBICIN [Suspect]
     Active Substance: DOXORUBICIN
     Indication: Triple negative breast cancer
     Dosage: 110 MG; 60 MG/M2 ON DAY 1 OF EACH 14-DAY CYCLE
     Route: 041
     Dates: start: 20220616, end: 20220728
  5. CYCLOPHOSPHAMIDE [Suspect]
     Active Substance: CYCLOPHOSPHAMIDE
     Indication: Triple negative breast cancer
     Dosage: 1104 MG; 600 MG/M2 ON DAY 1 OF EACH 14-DAY CYCLE
     Route: 041
     Dates: start: 20220616, end: 20220728
  6. PEMBROLIZUMAB [Suspect]
     Active Substance: PEMBROLIZUMAB
     Indication: Triple negative breast cancer
     Dosage: 400 MG; CYCLICAL
     Route: 041
     Dates: start: 20220616, end: 20220616
  7. PACLITAXEL [Suspect]
     Active Substance: PACLITAXEL
     Indication: Triple negative breast cancer
     Dosage: 134 MG; 80 MG/M2 ON DAY 1 OF EACH 7 DAY CYCLE
     Route: 041
     Dates: start: 20220811, end: 20221027
  8. CARBOPLATIN [Suspect]
     Active Substance: CARBOPLATIN
     Indication: Triple negative breast cancer
     Dosage: NOT ADMINISTERED
  9. ATENOLOL [Concomitant]
     Active Substance: ATENOLOL
     Indication: Hypertension
     Dosage: 50 MG, QD
     Route: 048
     Dates: start: 2012
  10. CITRACAL [CALCIUM;COLECALCIFEROL] [Concomitant]
     Indication: Mineral supplementation
     Dosage: 400 MG, QD
     Route: 048
     Dates: start: 2012
  11. DEXAMETHASONE [Concomitant]
     Active Substance: DEXAMETHASONE
     Indication: Chemotherapy side effect prophylaxis
     Dosage: 4 MG, BID
     Route: 048
     Dates: start: 20220615
  12. ACETAMINOPHEN\HYDROCODONE [Concomitant]
     Active Substance: ACETAMINOPHEN\HYDROCODONE
     Indication: Pain
     Dosage: 5/325 MG PRN
     Route: 048
     Dates: start: 20220519
  13. LIDOCAINE AND PRILOCAINE [Concomitant]
     Active Substance: LIDOCAINE\PRILOCAINE
     Indication: Local anaesthesia
     Dosage: 2.5 %, Q8H
     Route: 061
     Dates: start: 20220519
  14. ONDANSETRON HCL [Concomitant]
     Active Substance: ONDANSETRON HYDROCHLORIDE
     Indication: Prophylaxis of nausea and vomiting
     Dosage: 8 MG Q8H
     Route: 048
     Dates: start: 20220519
  15. DIETARY SUPPLEMENT [Concomitant]
     Active Substance: DIETARY SUPPLEMENT
     Indication: Hyperlipidaemia
     Dosage: 600 MG, TID
     Route: 048
     Dates: start: 2018
  16. EZETIMIBE [Concomitant]
     Active Substance: EZETIMIBE
     Indication: Hyperlipidaemia
     Dosage: 10 MG, QD
     Route: 048
     Dates: start: 2018
  17. PROCHLORPERAZINE MALEATE [Concomitant]
     Active Substance: PROCHLORPERAZINE MALEATE
     Indication: Prophylaxis of nausea and vomiting
     Dosage: 10 MG Q8H
     Route: 048
     Dates: start: 20220519
  18. VITAMINS [Concomitant]
     Active Substance: VITAMINS
     Indication: Vitamin supplementation
     Dosage: 1 CAPSULE, QD
     Route: 048
     Dates: start: 2018
  19. NIACIN [Concomitant]
     Active Substance: NIACIN
     Indication: Vitamin supplementation
     Dosage: 500 MG, QD
     Route: 048
     Dates: start: 2018
  20. OMEGA-3 FATTY ACIDS [Concomitant]
     Active Substance: OMEGA-3 FATTY ACIDS
     Indication: Nutritional supplementation
     Dosage: 1 CAPSULE, QD
     Route: 048
     Dates: start: 2018
  21. IMODIUM [Concomitant]
     Active Substance: LOPERAMIDE HYDROCHLORIDE
     Indication: Diarrhoea
     Dosage: 4 MG, PRN
     Route: 048
     Dates: start: 20220629
  22. SODIUM CHLORIDE [Concomitant]
     Active Substance: SODIUM CHLORIDE
     Indication: Hyponatraemia
     Dosage: 1 G, QD
     Route: 048
     Dates: start: 20221020

REACTIONS (6)
  - Urosepsis [Recovered/Resolved]
  - Pulmonary fibrosis [Recovered/Resolved]
  - Pulmonary embolism [Recovered/Resolved]
  - Pneumonia [Recovered/Resolved]
  - General physical health deterioration [Recovered/Resolved]
  - COVID-19 [Recovered/Resolved]

NARRATIVE: CASE EVENT DATE: 20221031
